FAERS Safety Report 16249229 (Version 6)
Quarter: 2019Q3

REPORT INFORMATION
  Report Type: Spontaneous
  Country: IT (occurrence: IT)
  Receive Date: 20190429
  Receipt Date: 20190704
  Transmission Date: 20191004
  Serious: Yes (Other)
  Sender: FDA-Public Use
  Company Number: IT-ACCORD-124579

PATIENT
  Age: 63 Year
  Sex: Male
  Weight: 74 kg

DRUGS (6)
  1. OMEPRAZOLE. [Concomitant]
     Active Substance: OMEPRAZOLE
  2. GEMCITABINE/GEMCITABINE HYDROCHLORIDE [Suspect]
     Active Substance: GEMCITABINE\GEMCITABINE HYDROCHLORIDE
     Indication: BLADDER CANCER
     Dosage: ALSO RECEIVED 1820 MG(12-NOV-2018 TO 06-JUN-2019)
     Route: 042
     Dates: start: 20181112
  3. UROREC [Concomitant]
     Active Substance: SILODOSIN
  4. DILATREND [Concomitant]
     Active Substance: CARVEDILOL
  5. COAPROVEL [Concomitant]
     Active Substance: HYDROCHLOROTHIAZIDE\IRBESARTAN
     Dosage: STRENGTH: 300 MG / 12.5 MG
  6. CISPLATIN. [Suspect]
     Active Substance: CISPLATIN
     Indication: BLADDER CANCER
     Dosage: ALSO RECEIVED 114 MG (12-NOV-2018 TO 06-JUN-2019)
     Route: 042
     Dates: start: 20181112

REACTIONS (7)
  - Rash [Recovering/Resolving]
  - Dysgeusia [Recovering/Resolving]
  - Dermatitis acneiform [Recovering/Resolving]
  - Dyspnoea at rest [Recovering/Resolving]
  - Thrombocytopenia [Recovering/Resolving]
  - Abdominal pain upper [Recovering/Resolving]
  - Eructation [Recovering/Resolving]

NARRATIVE: CASE EVENT DATE: 20181220
